FAERS Safety Report 24278974 (Version 1)
Quarter: 2024Q3

REPORT INFORMATION
  Report Type: Spontaneous
  Country: US (occurrence: US)
  Receive Date: 20240903
  Receipt Date: 20240903
  Transmission Date: 20241017
  Serious: No
  Sender: MYLAN
  Company Number: US-MYLANLABS-2024M1077261

PATIENT

DRUGS (1)
  1. METHYLPHENIDATE [Suspect]
     Active Substance: METHYLPHENIDATE
     Indication: Product used for unknown indication
     Dosage: 3.3 MILLIGRAM, QH (30 MG/9 HR)
     Route: 062

REACTIONS (3)
  - Headache [Unknown]
  - Withdrawal syndrome [Unknown]
  - Product dose omission issue [Unknown]
